FAERS Safety Report 14757197 (Version 1)
Quarter: 2018Q2

REPORT INFORMATION
  Report Type: Report from Study
  Country: CA (occurrence: CA)
  Receive Date: 20180413
  Receipt Date: 20180413
  Transmission Date: 20180711
  Serious: Yes (Other)
  Sender: FDA-Public Use
  Company Number: CA-JNJFOC-20180409644

PATIENT
  Sex: Female
  Weight: 72.5 kg

DRUGS (1)
  1. REMICADE [Suspect]
     Active Substance: INFLIXIMAB
     Indication: CROHN^S DISEASE
     Dosage: STRENGTH = 100 MG
     Route: 042

REACTIONS (5)
  - Hypertension [Recovering/Resolving]
  - Back pain [Recovered/Resolved]
  - Heart rate increased [Recovering/Resolving]
  - Infusion related reaction [Recovering/Resolving]
  - Oxygen saturation decreased [Recovering/Resolving]
